FAERS Safety Report 4972638-4 (Version None)
Quarter: 2006Q1

REPORT INFORMATION
  Report Type: 
  Country: None (occurrence: None)
  Receive Date: 20060216
  Receipt Date: 20051216
  Transmission Date: 20060701
  Serious: Yes (Hospitalization)
  Sender: FDA-Public Use
  Company Number: 200512IM000840

PATIENT
  Age: 76 Year
  Sex: Male
  Weight: 73.4827 kg

DRUGS (7)
  1. BLINDED THERAPY (INTERFERON GAMMA-1B) [Suspect]
     Indication: IDIOPATHIC PULMONARY FIBROSIS
     Dosage: 200 UG, TIW, SUBCUTANEOUS
     Route: 058
     Dates: start: 20041228
  2. ZOCOR [Concomitant]
  3. ASPIRIN [Concomitant]
  4. MULTIVITAMIN [Concomitant]
  5. IBUPROFEN [Concomitant]
  6. LEXAPRO [Concomitant]
  7. MIDODRINE HYDROCHLORIDE [Concomitant]

REACTIONS (1)
  - DIVERTICULITIS [None]
